FAERS Safety Report 9519443 (Version 3)
Quarter: 2014Q2

REPORT INFORMATION
  Report Type: Report from Study
  Country: JP (occurrence: JP)
  Receive Date: 20130912
  Receipt Date: 20140401
  Transmission Date: 20141212
  Serious: No
  Sender: FDA-Public Use
  Company Number: JP-GLAXOSMITHKLINE-B0844230A

PATIENT
  Age: 46 Year
  Sex: Female
  Weight: 51 kg

DRUGS (7)
  1. VOTRIENT 200MG [Suspect]
     Indication: LEIOMYOSARCOMA
     Dosage: 800MG PER DAY
     Route: 048
     Dates: start: 20121102, end: 20121206
  2. VOTRIENT 200MG [Suspect]
     Indication: LEIOMYOSARCOMA
     Dosage: 600MG PER DAY
     Route: 048
     Dates: start: 20121213, end: 20130508
  3. VOTRIENT 200MG [Suspect]
     Indication: LEIOMYOSARCOMA
     Dosage: 400MG PER DAY
     Route: 048
     Dates: start: 20130509, end: 20130718
  4. AMLODIPINE [Concomitant]
     Route: 048
  5. AMLODIPINE [Concomitant]
     Route: 048
  6. AMLODIPINE [Concomitant]
     Route: 048
  7. AMLODIPINE [Concomitant]
     Route: 048

REACTIONS (4)
  - Hypertension [Recovering/Resolving]
  - Platelet count decreased [Recovering/Resolving]
  - Neutrophil count decreased [Recovering/Resolving]
  - Neutrophil count decreased [Recovering/Resolving]
